FAERS Safety Report 19526199 (Version 1)
Quarter: 2021Q3

REPORT INFORMATION
  Report Type: Spontaneous
  Country: IT (occurrence: IT)
  Receive Date: 20210713
  Receipt Date: 20210713
  Transmission Date: 20211014
  Serious: Yes (Hospitalization, Other)
  Sender: FDA-Public Use
  Company Number: IT-INSUD PHARMA-2107IT00780

PATIENT
  Age: 37 Year
  Sex: Female

DRUGS (2)
  1. ESTRASORB [Suspect]
     Active Substance: ESTRADIOL HEMIHYDRATE
     Indication: OVULATION INDUCTION
     Dosage: 8 MG DAILY FOR 15 DAYS
     Route: 065
  2. PROGESTERONE. [Suspect]
     Active Substance: PROGESTERONE
     Indication: OVULATION INDUCTION
     Dosage: 200 MG DAILY FOR 5 DAYS FOLLOWING ESTROGEN
     Route: 065

REACTIONS (10)
  - Carotid artery dissection [Recovered/Resolved]
  - Carotid artery stenosis [Recovered/Resolved]
  - Facial paresis [Recovered/Resolved]
  - Balance disorder [Recovered/Resolved]
  - Ovarian hyperstimulation syndrome [Recovered/Resolved]
  - Headache [Recovered/Resolved]
  - Vomiting [Recovered/Resolved]
  - Abdominal distension [Recovered/Resolved]
  - Embolic cerebral infarction [Recovered/Resolved]
  - Asthenia [Recovered/Resolved]
